FAERS Safety Report 7997930-0 (Version None)
Quarter: 2011Q4

REPORT INFORMATION
  Report Type: 
  Country: None (occurrence: None)
  Receive Date: 20111221
  Receipt Date: 20111215
  Transmission Date: 20120403
  Serious: Yes (Other)
  Sender: FDA-Public Use
  Company Number: PHEH2009US13748

PATIENT
  Sex: Female

DRUGS (19)
  1. FEMARA [Concomitant]
  2. AROMASIN [Concomitant]
     Dosage: 25 MG, QD
  3. PRILOSEC [Concomitant]
     Dosage: 20 MG, BID
  4. LEXAPRO [Concomitant]
     Dosage: 20 MG, QD
     Route: 048
  5. WELLBUTRIN [Concomitant]
     Dosage: 150 MG,
  6. ABRAXANE [Concomitant]
  7. ZOMETA [Suspect]
     Indication: BREAST CANCER METASTATIC
     Dosage: EVERY 3 MONTHS
     Route: 042
     Dates: start: 20040305, end: 20070601
  8. ALBUTEROL [Concomitant]
     Dosage: 90 UG,
  9. FASLODEX [Concomitant]
  10. ARIMIDEX [Concomitant]
  11. TRAZODONE HCL [Concomitant]
     Dosage: 150 MG, QHS
     Route: 048
  12. CYMBALTA [Concomitant]
     Dosage: 30 MG, BID
  13. TAXOL [Concomitant]
  14. TAMOXIFEN [Concomitant]
  15. EFFEXOR [Concomitant]
     Dosage: 75 MG, QD
     Route: 048
  16. AMBIEN [Concomitant]
     Dosage: 10 MG, QHS
     Route: 048
  17. VICODIN [Concomitant]
  18. MULTI-VITAMINS [Concomitant]
  19. TOPROL-XL [Concomitant]
     Dosage: 50 MG, QD

REACTIONS (46)
  - INJURY [None]
  - ALOPECIA [None]
  - HOT FLUSH [None]
  - OSTEONECROSIS OF JAW [None]
  - ANXIETY [None]
  - LUNG NEOPLASM [None]
  - GASTROOESOPHAGEAL REFLUX DISEASE [None]
  - LARYNGITIS [None]
  - CORONARY ARTERY DISEASE [None]
  - HEADACHE [None]
  - HYPERTENSION [None]
  - METASTASES TO LYMPH NODES [None]
  - CHRONIC SINUSITIS [None]
  - NEUROPATHY PERIPHERAL [None]
  - PALATAL DISORDER [None]
  - NEOPLASM MALIGNANT [None]
  - ANHEDONIA [None]
  - CYST [None]
  - JAW FRACTURE [None]
  - HIATUS HERNIA [None]
  - OSTEOMYELITIS [None]
  - CHEST PAIN [None]
  - PAIN [None]
  - OSTEOARTHRITIS [None]
  - OSTEOPENIA [None]
  - DYSPHORIA [None]
  - HEPATIC STEATOSIS [None]
  - DEPRESSION [None]
  - METASTASES TO LIVER [None]
  - SPONDYLOLISTHESIS [None]
  - LYMPHADENOPATHY MEDIASTINAL [None]
  - LYMPHOEDEMA [None]
  - BACK PAIN [None]
  - GASTRITIS [None]
  - ABDOMINAL PAIN [None]
  - DYSPNOEA [None]
  - CHOLECYSTITIS [None]
  - ORAL CAVITY FISTULA [None]
  - GENERAL PHYSICAL HEALTH DETERIORATION [None]
  - SPINAL OSTEOARTHRITIS [None]
  - DIZZINESS [None]
  - VOCAL CORD PARALYSIS [None]
  - ASTHMA [None]
  - NEOPLASM PROGRESSION [None]
  - METASTASES TO BONE [None]
  - RENAL CYST [None]
